FAERS Safety Report 16586465 (Version 1)
Quarter: 2019Q3

REPORT INFORMATION
  Report Type: Spontaneous
  Country: CA (occurrence: CA)
  Receive Date: 20190717
  Receipt Date: 20190717
  Transmission Date: 20191004
  Serious: Yes (Life-Threatening)
  Sender: FDA-Public Use
  Company Number: CA-TEVA-2019-CA-1078683

PATIENT
  Age: 71 Year
  Sex: Female
  Weight: 114 kg

DRUGS (2)
  1. ENALAPRIL [Concomitant]
     Active Substance: ENALAPRIL
  2. ATORVASTATIN [Suspect]
     Active Substance: ATORVASTATIN
     Dosage: 40 MILLIGRAM DAILY;
     Route: 048

REACTIONS (7)
  - Hepatic enzyme abnormal [Unknown]
  - Rhabdomyolysis [Unknown]
  - Hepatic failure [Unknown]
  - Pain in extremity [Unknown]
  - Acute kidney injury [Unknown]
  - Asthenia [Unknown]
  - Respiratory disorder [Unknown]
